FAERS Safety Report 15890294 (Version 3)
Quarter: 2019Q1

REPORT INFORMATION
  Report Type: Report from Study
  Country: None (occurrence: TR)
  Receive Date: 20190130
  Receipt Date: 20190228
  Transmission Date: 20190417
  Serious: Yes (Other)
  Sender: FDA-Public Use
  Company Number: TR-ABBVIE-19S-161-2639753-00

PATIENT
  Sex: Male

DRUGS (6)
  1. RASALAS [Concomitant]
     Indication: PARKINSON^S DISEASE
     Route: 048
  2. DOPADEX SR [Concomitant]
     Indication: PARKINSON^S DISEASE
     Route: 048
  3. DUODOPA [Suspect]
     Active Substance: CARBIDOPA\LEVODOPA
     Indication: PARKINSON^S DISEASE
     Dosage: MD(ML): 7,50,CD(ML): 3,80,ED(ML): 2,00
     Route: 050
     Dates: start: 20181227, end: 20181230
  4. DOPALEVO [Concomitant]
     Indication: PARKINSON^S DISEASE
     Route: 048
  5. PK MERZ [Concomitant]
     Active Substance: AMANTADINE SULFATE
     Indication: PARKINSON^S DISEASE
     Route: 048
  6. PEXA XR [Concomitant]
     Indication: PARKINSON^S DISEASE
     Route: 048

REACTIONS (3)
  - Gastric ulcer [Not Recovered/Not Resolved]
  - Oesophageal ulcer [Not Recovered/Not Resolved]
  - Duodenal ulcer [Not Recovered/Not Resolved]
